FAERS Safety Report 7251539-5 (Version None)
Quarter: 2011Q1

REPORT INFORMATION
  Report Type: 
  Country: None (occurrence: None)
  Receive Date: 20110128
  Receipt Date: 20110114
  Transmission Date: 20110831
  Serious: Yes (Hospitalization, Other)
  Sender: FDA-Public Use
  Company Number: US-ELI_LILLY_AND_COMPANY-US201008004676

PATIENT
  Sex: Female
  Weight: 65.76 kg

DRUGS (4)
  1. FORTEO [Suspect]
     Dosage: 20 UG, DAILY (1/D)
     Dates: start: 20100624
  2. FORTEO [Suspect]
     Dosage: 20 UG, DAILY (1/D)
     Dates: end: 20100804
  3. MULTI-VITAMIN [Concomitant]
  4. FORTEO [Suspect]
     Indication: OSTEOPOROSIS
     Dosage: 20 UG, DAILY (1/D)
     Route: 058

REACTIONS (32)
  - PNEUMONIA [None]
  - PRESYNCOPE [None]
  - NAUSEA [None]
  - FATIGUE [None]
  - LETHARGY [None]
  - INSOMNIA [None]
  - SOMNOLENCE [None]
  - RASH MACULAR [None]
  - COUGH [None]
  - ASTHENIA [None]
  - APHASIA [None]
  - PARAESTHESIA [None]
  - MUSCULOSKELETAL PAIN [None]
  - DECREASED APPETITE [None]
  - WEIGHT DECREASED [None]
  - FRUSTRATION [None]
  - PRURITUS [None]
  - LUNG CARCINOMA CELL TYPE UNSPECIFIED STAGE IV [None]
  - BONE PAIN [None]
  - PAIN IN EXTREMITY [None]
  - LOSS OF CONSCIOUSNESS [None]
  - OVERDOSE [None]
  - PAROSMIA [None]
  - ALOPECIA [None]
  - DIZZINESS [None]
  - MOVEMENT DISORDER [None]
  - ARTHRALGIA [None]
  - BEDRIDDEN [None]
  - PAIN IN JAW [None]
  - MEMORY IMPAIRMENT [None]
  - PAIN [None]
  - MALAISE [None]
